FAERS Safety Report 18391075 (Version 3)
Quarter: 2020Q4

REPORT INFORMATION
  Report Type: Report from Study
  Country: US (occurrence: US)
  Receive Date: 20201016
  Receipt Date: 20201116
  Transmission Date: 20210114
  Serious: Yes (Hospitalization, Other)
  Sender: FDA-Public Use
  Company Number: US-UNITED THERAPEUTICS-UNT-2020-014299

PATIENT
  Age: 71 Year
  Sex: Male
  Weight: 82.09 kg

DRUGS (13)
  1. ORAL TREPROSTINIL [Suspect]
     Active Substance: TREPROSTINIL
     Dosage: 1.375 MG, Q8H
     Route: 048
  2. ORAL TREPROSTINIL [Suspect]
     Active Substance: TREPROSTINIL
     Indication: PULMONARY ARTERIAL HYPERTENSION
     Dosage: UNK
     Route: 048
     Dates: start: 20200903
  3. ORAL TREPROSTINIL [Suspect]
     Active Substance: TREPROSTINIL
     Dosage: 0.125 MG, Q8H
     Route: 048
  4. AMBRISENTAN [Suspect]
     Active Substance: AMBRISENTAN
     Indication: PRODUCT USED FOR UNKNOWN INDICATION
     Dosage: UNK
     Route: 065
  5. ORAL TREPROSTINIL [Suspect]
     Active Substance: TREPROSTINIL
     Dosage: 1.75 MG, Q8H
     Route: 048
  6. ORAL TREPROSTINIL [Suspect]
     Active Substance: TREPROSTINIL
     Dosage: 0.5 MG, Q8H
     Route: 048
  7. ORAL TREPROSTINIL [Suspect]
     Active Substance: TREPROSTINIL
     Dosage: 2.125 MG, Q8H
     Route: 048
  8. ORENITRAM [Suspect]
     Active Substance: TREPROSTINIL
     Indication: PULMONARY ARTERIAL HYPERTENSION
     Dosage: UNK
     Route: 048
  9. ORENITRAM [Suspect]
     Active Substance: TREPROSTINIL
     Indication: PULMONARY ARTERIAL HYPERTENSION
     Dosage: UNK
     Route: 048
  10. ORENITRAM [Suspect]
     Active Substance: TREPROSTINIL
     Indication: PULMONARY ARTERIAL HYPERTENSION
     Dosage: UNK
     Route: 048
  11. ORENITRAM [Suspect]
     Active Substance: TREPROSTINIL
     Indication: PULMONARY ARTERIAL HYPERTENSION
     Dosage: UNK
     Route: 048
  12. IRON [Suspect]
     Active Substance: IRON
     Indication: BLOOD COUNT ABNORMAL
     Dosage: UNK
     Route: 065
  13. TADALAFIL. [Concomitant]
     Active Substance: TADALAFIL
     Indication: PRODUCT USED FOR UNKNOWN INDICATION
     Dosage: UNK
     Route: 065

REACTIONS (15)
  - Headache [Unknown]
  - Nausea [Recovered/Resolved]
  - Vomiting [Unknown]
  - Pain in extremity [Unknown]
  - Neuralgia [Unknown]
  - Abdominal discomfort [Unknown]
  - Flushing [Unknown]
  - Illness [Unknown]
  - Arthralgia [Unknown]
  - Diarrhoea [Unknown]
  - Dizziness [Recovered/Resolved]
  - Pain in jaw [Unknown]
  - Gastrointestinal haemorrhage [Unknown]
  - Blood count abnormal [Unknown]
  - Myalgia [Unknown]

NARRATIVE: CASE EVENT DATE: 2020
